FAERS Safety Report 19802740 (Version 2)
Quarter: 2021Q4

REPORT INFORMATION
  Report Type: Report from Study
  Country: SE (occurrence: SE)
  Receive Date: 20210908
  Receipt Date: 20211005
  Transmission Date: 20220303
  Serious: Yes (Hospitalization, Other)
  Sender: FDA-Public Use
  Company Number: PHHY2018SE014581

PATIENT
  Age: 52 Year
  Sex: Male
  Weight: 133 kg

DRUGS (7)
  1. OMNITROPE [Suspect]
     Active Substance: SOMATROPIN
     Indication: Growth hormone deficiency
     Dosage: 0.2 MG, QD, (STRENGTH: 5 MG/1.5 ML)
     Route: 058
     Dates: start: 20130402
  2. TESTOSTERONE [Concomitant]
     Active Substance: TESTOSTERONE
     Indication: Luteinising hormone deficiency
     Dosage: UNK
     Route: 061
     Dates: start: 2011, end: 20210423
  3. TESTOSTERONE [Concomitant]
     Active Substance: TESTOSTERONE
     Indication: Follicle stimulating hormone deficiency
  4. LIOTHYRONINE SODIUM [Concomitant]
     Active Substance: LIOTHYRONINE SODIUM
     Indication: Thyroid disorder
     Dosage: UNK
     Route: 048
     Dates: start: 20150821, end: 20160502
  5. LIOTHYRONINE SODIUM [Concomitant]
     Active Substance: LIOTHYRONINE SODIUM
     Indication: Growth hormone deficiency
  6. IRON [Concomitant]
     Active Substance: IRON
     Indication: Iron deficiency anaemia
     Route: 048
  7. IRON [Concomitant]
     Active Substance: IRON
     Indication: Prophylaxis

REACTIONS (18)
  - Lumbar spinal stenosis [Not Recovered/Not Resolved]
  - Concomitant disease aggravated [Not Recovered/Not Resolved]
  - Muscular weakness [Recovering/Resolving]
  - Pain [Recovering/Resolving]
  - Intervertebral disc protrusion [Not Recovered/Not Resolved]
  - Osteoarthritis [Recovered/Resolved with Sequelae]
  - Gait disturbance [Recovered/Resolved with Sequelae]
  - Arthralgia [Recovered/Resolved with Sequelae]
  - Dyspnoea [Recovered/Resolved]
  - Pulmonary arteriopathy [Recovered/Resolved with Sequelae]
  - Type 2 diabetes mellitus [Unknown]
  - Pneumonia [Recovered/Resolved]
  - Venous thrombosis [Recovered/Resolved]
  - Hypertension [Not Recovered/Not Resolved]
  - Lymphadenopathy [Not Recovered/Not Resolved]
  - Red blood cell count increased [Unknown]
  - Haemoglobin increased [Unknown]
  - Device fastener issue [Unknown]

NARRATIVE: CASE EVENT DATE: 20160101
